FAERS Safety Report 6295410-4 (Version None)
Quarter: 2009Q3

REPORT INFORMATION
  Report Type: 
  Country: None (occurrence: None)
  Receive Date: 20090803
  Receipt Date: 20090729
  Transmission Date: 20100115
  Serious: Yes (Other)
  Sender: FDA-Public Use
  Company Number: US-B.I. PHARMACEUTICALS,INC./RIDGEFIELD-2009-BP-08924BP

PATIENT
  Age: 41 Year
  Sex: Female

DRUGS (3)
  1. DULCOLAX [Suspect]
     Indication: CONSTIPATION
     Dosage: 5 MG
     Route: 048
     Dates: start: 20090728, end: 20090729
  2. SINGULAIR [Concomitant]
     Indication: ASTHMA
  3. ZYRTEC [Concomitant]
     Indication: ASTHMA

REACTIONS (6)
  - ASTHENIA [None]
  - CONVULSION [None]
  - DIARRHOEA [None]
  - LOSS OF CONSCIOUSNESS [None]
  - MYDRIASIS [None]
  - PUPILS UNEQUAL [None]
